FAERS Safety Report 7640141-9 (Version None)
Quarter: 2011Q3

REPORT INFORMATION
  Report Type: 
  Country: None (occurrence: None)
  Receive Date: 20110728
  Receipt Date: 20110628
  Transmission Date: 20111222
  Serious: No
  Sender: FDA-Public Use
  Company Number: US-BAYER-2011-058337

PATIENT
  Sex: Male
  Weight: 86 kg

DRUGS (4)
  1. LOMOTIL [DIPHENOXYLATE HYDROCHLORIDE] [Concomitant]
  2. DEPOCYT [Concomitant]
  3. ZOLOFT [Concomitant]
  4. ALEVE (CAPLET) [Suspect]
     Indication: ARTHRALGIA
     Dosage: 2 DF, QD
     Route: 048
     Dates: start: 20110614, end: 20110624

REACTIONS (1)
  - ARTHRALGIA [None]
